FAERS Safety Report 9528287 (Version 1)
Quarter: 2013Q3

REPORT INFORMATION
  Report Type: Spontaneous
  Country: US (occurrence: US)
  Receive Date: 20130917
  Receipt Date: 20130917
  Transmission Date: 20140515
  Serious: Yes (Hospitalization)
  Sender: FDA-Public Use
  Company Number: US-BAYER-2013-111980

PATIENT
  Age: 24 Year
  Sex: Female
  Weight: 104.31 kg

DRUGS (10)
  1. YASMIN [Suspect]
     Dosage: UNK
     Dates: start: 20041014, end: 20041208
  2. YAZ [Suspect]
  3. ZYRTEC [Concomitant]
  4. DESOGEN [DESOGESTREL,ETHINYLESTRADIOL] [Concomitant]
  5. IBUPROFEN [Concomitant]
  6. PARAGARD [Concomitant]
  7. AUGMENTIN [Concomitant]
  8. MIRENA [Concomitant]
     Dosage: 20 MCG/24HR, CONT
  9. DEMEROL [Concomitant]
  10. ZOFRAN [Concomitant]

REACTIONS (1)
  - Deep vein thrombosis [None]
